FAERS Safety Report 17293262 (Version 1)
Quarter: 2020Q1

REPORT INFORMATION
  Report Type: Spontaneous
  Country: CN (occurrence: CN)
  Receive Date: 20200121
  Receipt Date: 20200121
  Transmission Date: 20200409
  Serious: Yes (Other)
  Sender: FDA-Public Use
  Company Number: CN-ELI_LILLY_AND_COMPANY-CN202001004835

PATIENT
  Age: 81 Year
  Sex: Female
  Weight: 60 kg

DRUGS (3)
  1. HUMALOG [Suspect]
     Active Substance: INSULIN LISPRO
     Dosage: 7 U, DAILY (NOON)
     Route: 058
     Dates: start: 2010
  2. HUMALOG [Suspect]
     Active Substance: INSULIN LISPRO
     Dosage: 6 U, DAILY(NIGHT)
     Route: 058
     Dates: start: 2010
  3. HUMALOG [Suspect]
     Active Substance: INSULIN LISPRO
     Indication: DIABETES MELLITUS
     Dosage: 6 U, EACH MORNING
     Route: 058
     Dates: start: 2010

REACTIONS (1)
  - Hypoacusis [Unknown]
